FAERS Safety Report 5283211-5 (Version None)
Quarter: 2007Q2

REPORT INFORMATION
  Report Type: 
  Country: None (occurrence: None)
  Receive Date: 20070402
  Receipt Date: 20070326
  Transmission Date: 20071010
  Serious: Yes (Other)
  Sender: FDA-Public Use
  Company Number: GR-EOF-70123

PATIENT
  Age: 19 Year
  Sex: Female
  Weight: 75 kg

DRUGS (2)
  1. ZINADOL [Suspect]
     Indication: URINARY TRACT INFECTION
     Route: 048
     Dates: start: 20070124, end: 20070126
  2. AMOXIL [Suspect]
     Indication: URINARY TRACT INFECTION
     Dosage: 1G TWICE PER DAY
     Route: 048
     Dates: start: 20070121, end: 20070124

REACTIONS (2)
  - PYREXIA [None]
  - RASH MACULO-PAPULAR [None]
